FAERS Safety Report 8208024-3 (Version None)
Quarter: 2012Q1

REPORT INFORMATION
  Report Type: 
  Country: None (occurrence: None)
  Receive Date: 20120314
  Receipt Date: 20120307
  Transmission Date: 20120608
  Serious: Yes (Hospitalization)
  Sender: FDA-Public Use
  Company Number: US-ABBOTT-12P-163-0913052-00

PATIENT
  Sex: Female

DRUGS (13)
  1. HUMIRA [Suspect]
     Indication: RHEUMATOID ARTHRITIS
     Dates: start: 20040601
  2. PRADAXA [Concomitant]
     Indication: THROMBOSIS PROPHYLAXIS
  3. BUMEX [Concomitant]
     Indication: FLUID RETENTION
  4. IMURAN [Concomitant]
     Indication: RHEUMATOID ARTHRITIS
  5. POTASSIUM CHLORIDE [Concomitant]
     Indication: MINERAL SUPPLEMENTATION
  6. LOPRESSOR [Concomitant]
     Indication: HYPERTENSION
  7. PRIMIDONE [Concomitant]
     Indication: PRODUCT USED FOR UNKNOWN INDICATION
  8. COUMADIN [Suspect]
     Indication: THROMBOSIS PROPHYLAXIS
  9. PRILOSEC [Concomitant]
     Indication: GASTROOESOPHAGEAL REFLUX DISEASE
  10. PRADAXA [Concomitant]
  11. VITAMIN D [Concomitant]
     Indication: VITAMIN SUPPLEMENTATION
  12. CLARITIN [Concomitant]
     Indication: HYPERSENSITIVITY
  13. I-CAPS [Concomitant]
     Indication: PRODUCT USED FOR UNKNOWN INDICATION

REACTIONS (3)
  - INTERNATIONAL NORMALISED RATIO INCREASED [None]
  - HAEMORRHAGE [None]
  - DECUBITUS ULCER [None]
